FAERS Safety Report 4664971-0 (Version None)
Quarter: 2005Q2

REPORT INFORMATION
  Report Type: 
  Country: None (occurrence: None)
  Receive Date: 20050517
  Receipt Date: 20050429
  Transmission Date: 20051028
  Serious: Yes (Death)
  Sender: FDA-Public Use
  Company Number: US_0504116628

PATIENT
  Age: 70 Year

DRUGS (3)
  1. GEMCITABINE HYDROCHLORIDE-IV (GEMCITABINE) [Suspect]
     Indication: TRANSITIONAL CELL CARCINOMA
     Dosage: 1000 MG/M2 OTHER
     Route: 050
  2. PACLITAXEL [Concomitant]
  3. CISPLATIN [Concomitant]

REACTIONS (3)
  - BONE MARROW TOXICITY [None]
  - NEUTROPENIC SEPSIS [None]
  - PERFORMANCE STATUS DECREASED [None]
